FAERS Safety Report 9674619 (Version 2)
Quarter: 2013Q4

REPORT INFORMATION
  Report Type: Spontaneous
  Country: IT (occurrence: IT)
  Receive Date: 20131107
  Receipt Date: 20131111
  Transmission Date: 20140711
  Serious: Yes (Hospitalization, Other)
  Sender: FDA-Public Use
  Company Number: IT-009507513-1311ITA000167

PATIENT
  Age: 86 Year
  Sex: Female

DRUGS (6)
  1. SINEMET 100MG + 25MG COMPRESSE [Suspect]
     Indication: PARKINSON^S DISEASE
     Dosage: 200MG+50MG QD
     Route: 048
     Dates: start: 20050101, end: 20131006
  2. CODEINE W/PARACETAMOL [Suspect]
     Indication: OSTEOARTHRITIS
     Dosage: UNK, PRN
     Route: 048
     Dates: start: 20090915, end: 20131005
  3. GLUCOBAY [Suspect]
     Indication: DIABETES MELLITUS
     Dosage: 100 MG, QD
     Route: 048
     Dates: start: 20120101, end: 20131006
  4. CARDIRENE [Concomitant]
  5. LANSOPRAZOLE [Concomitant]
  6. NUTRITIONAL SUPPLEMENTS [Concomitant]
     Indication: ARTHRALGIA
     Route: 048

REACTIONS (4)
  - Rhabdomyolysis [Recovering/Resolving]
  - Myoglobin blood increased [Recovering/Resolving]
  - Blood creatine phosphokinase increased [Recovering/Resolving]
  - Blood lactate dehydrogenase increased [Recovering/Resolving]
